FAERS Safety Report 6660312-8 (Version None)
Quarter: 2010Q1

REPORT INFORMATION
  Report Type: 
  Country: None (occurrence: None)
  Receive Date: 20100331
  Receipt Date: 20100324
  Transmission Date: 20100710
  Serious: No
  Sender: FDA-Public Use
  Company Number: 2010BI004823

PATIENT
  Age: 68 Year
  Sex: Female

DRUGS (2)
  1. TYSABRI [Suspect]
     Indication: MULTIPLE SCLEROSIS
     Route: 042
     Dates: start: 20071211, end: 20091110
  2. TYSABRI [Suspect]
     Route: 042
     Dates: start: 20100201

REACTIONS (6)
  - DEPRESSED MOOD [None]
  - HEADACHE [None]
  - NAUSEA [None]
  - NIGHT SWEATS [None]
  - PAIN IN EXTREMITY [None]
  - WEIGHT DECREASED [None]
